FAERS Safety Report 5562554-1 (Version None)
Quarter: 2007Q4

REPORT INFORMATION
  Report Type: 
  Country: None (occurrence: None)
  Receive Date: 20071217
  Receipt Date: 20041201
  Transmission Date: 20080405
  Serious: Yes (Other)
  Sender: FDA-Public Use
  Company Number: IT-JNJFOC-20071106230

PATIENT
  Age: 22 Year
  Sex: Male
  Weight: 60 kg

DRUGS (6)
  1. HALOPERIDOL [Suspect]
     Indication: DEMENTIA
     Route: 048
  2. DIGOXIN [Concomitant]
     Route: 065
  3. ACE INHIBITORS [Concomitant]
     Route: 065
  4. CALCIUM ANTAGONISTS [Concomitant]
     Route: 065
  5. ANTICOAGULANTS [Concomitant]
     Route: 065
  6. ORAL HYPOGLYCAEMICS [Concomitant]
     Indication: DIABETES MELLITUS
     Route: 065

REACTIONS (2)
  - EXTRAPYRAMIDAL DISORDER [None]
  - WEIGHT INCREASED [None]
